FAERS Safety Report 4878735-6 (Version None)
Quarter: 2006Q1

REPORT INFORMATION
  Report Type: 
  Country: None (occurrence: None)
  Receive Date: 20060112
  Receipt Date: 20060109
  Transmission Date: 20060701
  Serious: Yes (Other)
  Sender: FDA-Public Use
  Company Number: 2006AP00062

PATIENT
  Weight: 3 kg

DRUGS (1)
  1. MEROPENEM [Suspect]

REACTIONS (1)
  - DRUG HYPERSENSITIVITY [None]
